FAERS Safety Report 10245587 (Version 2)
Quarter: 2014Q2

REPORT INFORMATION
  Report Type: Spontaneous
  Country: JP (occurrence: JP)
  Receive Date: 20140619
  Receipt Date: 20140619
  Transmission Date: 20141212
  Serious: Yes (Hospitalization, Other)
  Sender: FDA-Public Use
  Company Number: JP-ROCHE-1313015

PATIENT
  Age: 15 Year
  Sex: Female

DRUGS (1)
  1. CELLCEPT [Suspect]
     Indication: JUVENILE IDIOPATHIC ARTHRITIS
     Dosage: DOSAGE IS UNCERTAIN.
     Route: 048

REACTIONS (3)
  - Herpes zoster [Recovered/Resolved]
  - VIIth nerve paralysis [Unknown]
  - Off label use [Unknown]
